FAERS Safety Report 7568703-8 (Version None)
Quarter: 2011Q2

REPORT INFORMATION
  Report Type: 
  Country: None (occurrence: None)
  Receive Date: 20110623
  Receipt Date: 20110617
  Transmission Date: 20111010
  Serious: Yes (Hospitalization)
  Sender: FDA-Public Use
  Company Number: GB-MERCK-1106GBR00027

PATIENT
  Age: 57 Year
  Sex: Male

DRUGS (13)
  1. RANOLAZINE [Suspect]
     Route: 048
     Dates: start: 20110407, end: 20110505
  2. ISOSORBIDE MONONITRATE [Concomitant]
     Route: 048
  3. AMLODIPINE [Concomitant]
     Route: 048
  4. RANOLAZINE [Suspect]
     Indication: ANGINA PECTORIS
     Route: 048
     Dates: start: 20110506, end: 20110522
  5. NICORANDIL [Concomitant]
     Route: 048
  6. ASPIRIN [Concomitant]
     Route: 048
  7. NITROGLYCERIN [Concomitant]
     Route: 060
  8. RAMIPRIL [Concomitant]
     Route: 048
  9. CARVEDILOL [Concomitant]
     Route: 048
  10. NAFRONYL OXALATE [Concomitant]
     Route: 048
  11. TRIMETHOPRIM [Concomitant]
     Route: 048
     Dates: start: 20110520, end: 20110522
  12. ISOSORBIDE MONONITRATE [Concomitant]
     Route: 048
  13. ZOCOR [Suspect]
     Indication: HYPERCHOLESTEROLAEMIA
     Route: 048
     Dates: start: 20060724, end: 20110522

REACTIONS (8)
  - ARTHRALGIA [None]
  - VOMITING [None]
  - MUSCULOSKELETAL PAIN [None]
  - CHROMATURIA [None]
  - DRUG INTERACTION [None]
  - MALAISE [None]
  - RHABDOMYOLYSIS [None]
  - BLOOD CREATINE PHOSPHOKINASE INCREASED [None]
